FAERS Safety Report 5378331-0 (Version None)
Quarter: 2007Q2

REPORT INFORMATION
  Report Type: 
  Country: None (occurrence: None)
  Receive Date: 20070530
  Receipt Date: 20070219
  Transmission Date: 20071010
  Serious: No
  Sender: FDA-Public Use
  Company Number: 2007PV030291

PATIENT
  Sex: Female
  Weight: 87.5442 kg

DRUGS (3)
  1. BYETTA [Suspect]
     Dosage: 10 MCG; BID SC, 5 MCG; BID; SC
     Route: 058
     Dates: start: 20051101, end: 20050101
  2. BYETTA [Suspect]
     Dosage: 10 MCG; BID SC, 5 MCG; BID; SC
     Route: 058
     Dates: start: 20051201
  3. METFORMIN HCL [Concomitant]

REACTIONS (2)
  - BLOOD GLUCOSE INCREASED [None]
  - INJECTION SITE PAIN [None]
